FAERS Safety Report 18821859 (Version 1)
Quarter: 2021Q1

REPORT INFORMATION
  Report Type: Spontaneous
  Country: US (occurrence: US)
  Receive Date: 20210202
  Receipt Date: 20210202
  Transmission Date: 20210419
  Serious: Yes (Other)
  Sender: FDA-Public Use
  Company Number: US-PACIRA-2021000041

PATIENT
  Age: 66 Year
  Sex: Male

DRUGS (15)
  1. MELOXICAM. [Concomitant]
     Active Substance: MELOXICAM
     Indication: PREOPERATIVE CARE
     Dosage: IF IV CONTRAINDICATED
     Route: 061
  2. ENTERIC?COATED ASPIRIN 325 MG [Concomitant]
     Indication: THROMBOSIS PROPHYLAXIS
     Dosage: 325 MG
     Route: 065
  3. DILAUDID [Concomitant]
     Active Substance: HYDROMORPHONE HYDROCHLORIDE
     Indication: THROMBOSIS PROPHYLAXIS
     Dosage: 2 MG POST?OP
     Route: 065
  4. MIDAZOLAM. [Concomitant]
     Active Substance: MIDAZOLAM
     Indication: POSTOPERATIVE CARE
     Dosage: 2 MG PRE?OP, 2 MG PERI?OP
     Route: 065
  5. FENTANYL. [Concomitant]
     Active Substance: FENTANYL
     Indication: POSTOPERATIVE CARE
     Dosage: 100 MCG PRE?OP
     Route: 065
  6. OXYCODONE [Concomitant]
     Active Substance: OXYCODONE
     Indication: POSTOPERATIVE CARE
     Dosage: 20 MG PRE?OP, 5 MG MULTIMODAL PAIN PROTOCOL
     Route: 065
  7. EXPAREL [Suspect]
     Active Substance: BUPIVACAINE
     Indication: POSTOPERATIVE ANALGESIA
     Dosage: 266 MG
     Route: 065
  8. VANC [Concomitant]
     Active Substance: VANCOMYCIN
     Indication: PREOPERATIVE CARE
     Dosage: 1 G BEFORE SURGERY
     Route: 042
  9. GABAPENTIN. [Concomitant]
     Active Substance: GABAPENTIN
     Indication: POSTOPERATIVE CARE
     Dosage: BID FOR 2 WEEKS
     Route: 065
  10. CLINDAMYCIN. [Concomitant]
     Active Substance: CLINDAMYCIN
     Indication: POSTOPERATIVE CARE
     Dosage: 300 MG
     Route: 065
  11. MELOXICAM. [Concomitant]
     Active Substance: MELOXICAM
     Indication: PREOPERATIVE CARE
     Dosage: 7.5
     Route: 065
  12. CEFAZOLIN [Concomitant]
     Active Substance: CEFAZOLIN
     Indication: PREOPERATIVE CARE
     Dosage: 1 G BEFORE SURGERY
     Route: 042
  13. ACETAMINOPHEN. [Concomitant]
     Active Substance: ACETAMINOPHEN
     Indication: PREOPERATIVE CARE
     Dosage: BEFORE SURGERY
     Route: 065
  14. TRAMADOL. [Concomitant]
     Active Substance: TRAMADOL
     Indication: POSTOPERATIVE CARE
     Dosage: Q6H OR AS NEEDED
     Route: 065
  15. CORTISONE [Concomitant]
     Active Substance: CORTISONE
     Indication: THROMBOSIS PROPHYLAXIS
     Dosage: UNKNOWN
     Route: 065

REACTIONS (1)
  - Postoperative wound infection [Unknown]
